FAERS Safety Report 7937660-4 (Version None)
Quarter: 2011Q4

REPORT INFORMATION
  Report Type: 
  Country: None (occurrence: None)
  Receive Date: 20111123
  Receipt Date: 20111115
  Transmission Date: 20120403
  Serious: Yes (Other)
  Sender: FDA-Public Use
  Company Number: PHEH2011US009402

PATIENT
  Age: 77 Year
  Sex: Male

DRUGS (6)
  1. SOTALOL HCL [Concomitant]
  2. CRESTOR [Suspect]
     Dosage: 20 MG AND 40 MG
  3. LESCOL [Suspect]
  4. LIPITOR [Suspect]
     Dosage: 20 MG AND 40 MG
  5. COUMADIN [Concomitant]
  6. WATER PILLS [Concomitant]

REACTIONS (2)
  - CEREBROVASCULAR ACCIDENT [None]
  - MYALGIA [None]
